FAERS Safety Report 17483096 (Version 1)
Quarter: 2020Q1

REPORT INFORMATION
  Report Type: Spontaneous
  Country: US (occurrence: US)
  Receive Date: 20200228
  Receipt Date: 20200228
  Transmission Date: 20200409
  Serious: Yes (Other)
  Sender: FDA-Public Use
  Company Number: None

PATIENT
  Age: 47 Year
  Sex: Male
  Weight: 86.4 kg

DRUGS (10)
  1. GABAPENTIN. [Concomitant]
     Active Substance: GABAPENTIN
  2. VENLAFAXINE [Concomitant]
     Active Substance: VENLAFAXINE HYDROCHLORIDE
  3. VOLUMEN [Suspect]
     Active Substance: BARIUM SULFATE
     Indication: MAGNETIC RESONANCE IMAGING
     Dosage: ?          QUANTITY:2 BOTTLES;OTHER FREQUENCY:AS DIRECTED;?
     Route: 048
     Dates: start: 20200228, end: 20200228
  4. LUNESTA [Concomitant]
     Active Substance: ESZOPICLONE
  5. BACLOFEN. [Concomitant]
     Active Substance: BACLOFEN
  6. DILAUDID [Concomitant]
     Active Substance: HYDROMORPHONE HYDROCHLORIDE
  7. METHOCARBAMOL. [Concomitant]
     Active Substance: METHOCARBAMOL
  8. PROPRANOLOL [Concomitant]
     Active Substance: PROPRANOLOL HYDROCHLORIDE
  9. HYDROXYZINE PAMOATE. [Concomitant]
     Active Substance: HYDROXYZINE PAMOATE
  10. ESZOPICLONE. [Concomitant]
     Active Substance: ESZOPICLONE

REACTIONS (10)
  - Gastrointestinal pain [None]
  - Diarrhoea [None]
  - Neuralgia [None]
  - Flatulence [None]
  - Lethargy [None]
  - Dehydration [None]
  - Haemorrhage [None]
  - Abdominal discomfort [None]
  - Impaired gastric emptying [None]
  - Fatigue [None]

NARRATIVE: CASE EVENT DATE: 20200228
